FAERS Safety Report 8187971-5 (Version None)
Quarter: 2012Q1

REPORT INFORMATION
  Report Type: 
  Country: None (occurrence: None)
  Receive Date: 20120306
  Receipt Date: 20120223
  Transmission Date: 20120608
  Serious: Yes (Hospitalization)
  Sender: FDA-Public Use
  Company Number: IT-ELI_LILLY_AND_COMPANY-IT201202007012

PATIENT
  Sex: Female

DRUGS (2)
  1. HUMALOG [Suspect]
     Indication: TYPE 1 DIABETES MELLITUS
     Dosage: UNK, OTHER
     Route: 058
     Dates: start: 20050501
  2. LANTUS [Concomitant]
     Dosage: 24 IU, QD
     Route: 058
     Dates: start: 20050101

REACTIONS (5)
  - HYPOPHAGIA [None]
  - BLOOD GLUCOSE INCREASED [None]
  - ACCIDENTAL OVERDOSE [None]
  - HYPOGLYCAEMIA [None]
  - INCORRECT DOSE ADMINISTERED [None]
